FAERS Safety Report 4601245-8 (Version None)
Quarter: 2005Q1

REPORT INFORMATION
  Report Type: 
  Country: None (occurrence: None)
  Receive Date: 20050304
  Receipt Date: 20050225
  Transmission Date: 20050727
  Serious: Yes (Hospitalization, Other)
  Sender: FDA-Public Use
  Company Number: KII-2005-0015351

PATIENT
  Age: 27 Year
  Sex: Male

DRUGS (5)
  1. OXYCODONE HCL [Suspect]
     Dosage: ORAL
     Route: 048
  2. SSRI [Suspect]
     Dosage: ORAL
     Route: 048
  3. BENZODIAZEPINE DERIVATIVES [Suspect]
     Dosage: ORAL
     Route: 048
  4. NALOXONE [Suspect]
     Dosage: ORAL
     Route: 048
  5. TETRAHYDROCANNABINOL (TETRAHYDROCANNABIMOL) [Suspect]

REACTIONS (12)
  - ANOXIC ENCEPHALOPATHY [None]
  - BLOOD CANNABINOIDS [None]
  - BLOOD PRESSURE DECREASED [None]
  - COMA [None]
  - CONTUSION [None]
  - CONVULSION [None]
  - DRUG SCREEN POSITIVE [None]
  - HEART RATE INCREASED [None]
  - METABOLIC ACIDOSIS [None]
  - OPIATES [None]
  - POLYSUBSTANCE ABUSE [None]
  - RHABDOMYOLYSIS [None]
